FAERS Safety Report 4693186-5 (Version None)
Quarter: 2005Q2

REPORT INFORMATION
  Report Type: 
  Country: None (occurrence: None)
  Receive Date: 20050617
  Receipt Date: 20050610
  Transmission Date: 20051028
  Serious: Yes (Other)
  Sender: FDA-Public Use
  Company Number: US-JNJFOC-20050603346

PATIENT
  Age: 39 Year
  Sex: Female
  Weight: 72.58 kg

DRUGS (7)
  1. LEVAQUIN [Suspect]
     Indication: PNEUMONIA
  2. COMBIVENT [Concomitant]
  3. COMBIVENT [Concomitant]
  4. ASPIRIN [Concomitant]
  5. VYTORIN [Concomitant]
  6. TOPROL-XL [Concomitant]
  7. BENICAR [Concomitant]

REACTIONS (2)
  - ARTHRALGIA [None]
  - MENISCUS LESION [None]
